FAERS Safety Report 5157963-9 (Version None)
Quarter: 2006Q4

REPORT INFORMATION
  Report Type: 
  Country: None (occurrence: None)
  Receive Date: 20061127
  Receipt Date: 20061117
  Transmission Date: 20070319
  Serious: Yes (Other)
  Sender: FDA-Public Use
  Company Number: ZA-ABBOTT-06P-143-0351195-00

PATIENT

DRUGS (1)
  1. ULTANE [Suspect]
     Indication: ANAESTHESIA

REACTIONS (3)
  - HEPATIC FAILURE [None]
  - HYPOTENSION [None]
  - MALAISE [None]
